FAERS Safety Report 13571982 (Version 1)
Quarter: 2017Q2

REPORT INFORMATION
  Report Type: Spontaneous
  Country: DE (occurrence: DE)
  Receive Date: 20170523
  Receipt Date: 20170523
  Transmission Date: 20170830
  Serious: Yes (Hospitalization, Other)
  Sender: FDA-Public Use
  Company Number: PHHY2017DE070612

PATIENT
  Age: 47 Year
  Sex: Male

DRUGS (9)
  1. PREDNISOLONE. [Concomitant]
     Active Substance: PREDNISOLONE
     Indication: GRAFT VERSUS HOST DISEASE
  2. MYCOPHENOLATE MOFETIL. [Concomitant]
     Active Substance: MYCOPHENOLATE MOFETIL
     Indication: GRAFT VERSUS HOST DISEASE
  3. EVEROLIMUS [Suspect]
     Active Substance: EVEROLIMUS
     Indication: STEM CELL TRANSPLANT
     Dosage: UNK
     Route: 065
     Dates: start: 201001, end: 201612
  4. EVEROLIMUS [Suspect]
     Active Substance: EVEROLIMUS
     Indication: GRAFT VERSUS HOST DISEASE
  5. PREDNISOLONE. [Concomitant]
     Active Substance: PREDNISOLONE
     Indication: STEM CELL TRANSPLANT
     Dosage: UNK
     Route: 065
  6. PREDNISOLONE. [Concomitant]
     Active Substance: PREDNISOLONE
     Indication: CORNEAL TRANSPLANT
  7. MYCOPHENOLATE MOFETIL. [Concomitant]
     Active Substance: MYCOPHENOLATE MOFETIL
     Indication: CORNEAL TRANSPLANT
  8. EVEROLIMUS [Suspect]
     Active Substance: EVEROLIMUS
     Indication: CORNEAL TRANSPLANT
  9. MYCOPHENOLATE MOFETIL. [Concomitant]
     Active Substance: MYCOPHENOLATE MOFETIL
     Indication: STEM CELL TRANSPLANT
     Dosage: UNK
     Route: 065
     Dates: end: 2010

REACTIONS (7)
  - Ulcerative keratitis [Unknown]
  - Corneal graft rejection [Unknown]
  - Product use in unapproved indication [Unknown]
  - Myopathy [Unknown]
  - Mobility decreased [Unknown]
  - Skin disorder [Unknown]
  - Coronary artery disease [Unknown]

NARRATIVE: CASE EVENT DATE: 201001
